FAERS Safety Report 11085255 (Version 2)
Quarter: 2015Q2

REPORT INFORMATION
  Report Type: Spontaneous
  Country: US (occurrence: US)
  Receive Date: 20150503
  Receipt Date: 20150525
  Transmission Date: 20150821
  Serious: Yes (Other)
  Sender: FDA-Public Use
  Company Number: US-JNJFOC-20131200171

PATIENT
  Age: 95 Year
  Sex: Female
  Weight: 54.43 kg

DRUGS (1)
  1. XARELTO [Suspect]
     Active Substance: RIVAROXABAN
     Indication: THROMBOSIS PROPHYLAXIS
     Route: 048
     Dates: start: 20131122

REACTIONS (2)
  - Haematuria [Not Recovered/Not Resolved]
  - Mouth haemorrhage [Not Recovered/Not Resolved]

NARRATIVE: CASE EVENT DATE: 201311
